FAERS Safety Report 24605123 (Version 1)
Quarter: 2024Q4

REPORT INFORMATION
  Report Type: Spontaneous
  Country: US (occurrence: US)
  Receive Date: 20241111
  Receipt Date: 20241111
  Transmission Date: 20250115
  Serious: No
  Sender: PARATEK PHARMACEUTICALS
  Company Number: US-PARATEK PHARMACEUTICALS, INC.-2023PTK00614

PATIENT

DRUGS (4)
  1. NUZYRA [Suspect]
     Active Substance: OMADACYCLINE
     Indication: Wound infection
     Dosage: UNK
     Route: 048
  2. UNSPECIFIED ANTIBIOTIC #1 [Concomitant]
  3. UNSPECIFIED ANTIBIOTIC #2 [Concomitant]
  4. UNSPECIFIED ANTIBIOTIC #3 [Concomitant]

REACTIONS (1)
  - Pruritus [Recovered/Resolved]
